FAERS Safety Report 13912758 (Version 1)
Quarter: 2017Q3

REPORT INFORMATION
  Report Type: Spontaneous
  Country: US (occurrence: US)
  Receive Date: 20170828
  Receipt Date: 20170828
  Transmission Date: 20171127
  Serious: Yes (Other)
  Sender: FDA-Public Use
  Company Number: US-BAUSCH-BL-2017-025175

PATIENT
  Age: 83 Year
  Sex: Female
  Weight: 63.56 kg

DRUGS (4)
  1. LOTEMAX [Suspect]
     Active Substance: LOTEPREDNOL ETABONATE
     Dosage: IN THE LEFT EYE
     Route: 047
     Dates: start: 2017, end: 2017
  2. LOTEMAX [Suspect]
     Active Substance: LOTEPREDNOL ETABONATE
     Dosage: IN THE LEFT EYE FOR THE LAST WEEK
     Route: 047
     Dates: start: 2017, end: 20170807
  3. LOTEMAX [Suspect]
     Active Substance: LOTEPREDNOL ETABONATE
     Indication: POSTOPERATIVE CARE
     Dosage: IN THE LEFT EYE
     Route: 047
     Dates: start: 20170630, end: 2017
  4. LOTEMAX [Suspect]
     Active Substance: LOTEPREDNOL ETABONATE
     Route: 047
     Dates: start: 20170817, end: 20170820

REACTIONS (9)
  - Swelling [Recovered/Resolved]
  - Incorrect drug administration duration [Recovered/Resolved]
  - Retinal oedema [Unknown]
  - Headache [Recovered/Resolved]
  - Urticaria [Recovering/Resolving]
  - Swollen tongue [Recovered/Resolved]
  - Pruritus [Recovered/Resolved]
  - Erythema [Recovered/Resolved]
  - Lip swelling [Unknown]

NARRATIVE: CASE EVENT DATE: 2017
